FAERS Safety Report 5714903-9 (Version None)
Quarter: 2008Q2

REPORT INFORMATION
  Report Type: 
  Country: None (occurrence: None)
  Receive Date: 20080423
  Receipt Date: 20070918
  Transmission Date: 20081010
  Serious: No
  Sender: FDA-Public Use
  Company Number: US-BAYER-US-2007-035246

PATIENT
  Age: 74 Year
  Sex: Male
  Weight: 135 kg

DRUGS (9)
  1. LEUKINE [Suspect]
     Indication: PROSTATE CANCER
     Route: 058
     Dates: start: 20061006, end: 20070301
  2. LEUKINE [Suspect]
     Route: 058
     Dates: start: 20070918
  3. CASODEX [Concomitant]
     Dosage: UNIT DOSE: 150 MG
     Route: 048
  4. PERCOCET-5 [Concomitant]
     Indication: PAIN
     Route: 048
  5. FENTANYL CITRATE [Concomitant]
     Route: 061
  6. PREDNISONE [Concomitant]
     Dosage: UNIT DOSE: 5 MG
     Route: 048
  7. LUPRON [Concomitant]
     Route: 030
  8. PROCRIT [Concomitant]
     Route: 058
  9. TAXOTERE [Concomitant]
     Route: 042

REACTIONS (3)
  - BACK PAIN [None]
  - CHEST DISCOMFORT [None]
  - FLANK PAIN [None]
